FAERS Safety Report 26121073 (Version 1)
Quarter: 2025Q4

REPORT INFORMATION
  Report Type: Spontaneous
  Country: US (occurrence: None)
  Receive Date: 20251203
  Receipt Date: 20251203
  Transmission Date: 20260118
  Serious: Yes (Other)
  Sender: FDA-CTU
  Company Number: None

PATIENT
  Age: 32 Year
  Sex: Female
  Weight: 273 kg

DRUGS (2)
  1. ZOLOFT [Suspect]
     Active Substance: SERTRALINE HYDROCHLORIDE
     Indication: Anxiety
     Dosage: FREQUENCY : DAILY;?
     Route: 048
  2. VITAMINS [Suspect]
     Active Substance: VITAMINS
     Dosage: FREQUENCY : DAILY;?
     Route: 048

REACTIONS (2)
  - Ectopic pregnancy [None]
  - Drug exposure before pregnancy [None]

NARRATIVE: CASE EVENT DATE: 20251117
